FAERS Safety Report 8864065 (Version 1)
Quarter: 2012Q4

REPORT INFORMATION
  Report Type: 
  Country: US (occurrence: US)
  Receive Date: 20121024
  Receipt Date: 20121024
  Transmission Date: 20130627
  Serious: No
  Sender: FDA-Public Use
  Company Number: US-AMGEN-USASP2011065536

PATIENT
  Age: 60 Year
  Sex: Male
  Weight: 102.4 kg

DRUGS (8)
  1. ENBREL [Suspect]
     Indication: PRODUCT USED FOR UNKNOWN INDICATION
     Dosage: UNK
  2. FOLIC ACID [Concomitant]
     Dosage: 1 mg, UNK
  3. METHOTREXATE [Concomitant]
     Dosage: 2.5 mg, UNK
  4. PRAVASTATIN [Concomitant]
     Dosage: 20 mg, UNK
  5. VERAPAMIL [Concomitant]
     Dosage: 120 mg, UNK
  6. NIASPAN [Concomitant]
     Dosage: 750 mg, UNK
  7. LATANOPROST [Concomitant]
     Dosage: 0.005 %, UNK
  8. LOSARTAN [Concomitant]
     Dosage: 25 mg, UNK

REACTIONS (4)
  - Palpitations [Unknown]
  - Asthenia [Unknown]
  - Injection site rash [Unknown]
  - Upper respiratory tract infection [Unknown]
